FAERS Safety Report 5478537-6 (Version None)
Quarter: 2007Q3

REPORT INFORMATION
  Report Type: 
  Country: None (occurrence: None)
  Receive Date: 20070718
  Receipt Date: 20060601
  Transmission Date: 20080115
  Serious: No
  Sender: FDA-Public Use
  Company Number: US-KINGPHARMUSA00001-K200600061

PATIENT

DRUGS (3)
  1. LEVOXYL [Suspect]
     Indication: HYPOTHYROIDISM
     Dosage: 25 MCG QD
     Route: 048
     Dates: start: 19980101, end: 20010101
  2. LEVOXYL [Suspect]
     Dosage: 37.5 MCG (1.5 25 MCG TABS) QD
     Route: 048
     Dates: start: 20051101, end: 20060115
  3. LEVOXYL [Suspect]
     Dosage: 50 MCG (2 25 MCG TABS) QD
     Route: 048
     Dates: start: 20060116, end: 20060101

REACTIONS (7)
  - BURNING SENSATION [None]
  - DYSGEUSIA [None]
  - EAR DISCOMFORT [None]
  - GLOSSODYNIA [None]
  - HEADACHE [None]
  - TONGUE COATED [None]
  - WEIGHT FLUCTUATION [None]
